FAERS Safety Report 11051123 (Version 1)
Quarter: 2015Q2

REPORT INFORMATION
  Report Type: Spontaneous
  Country: FR (occurrence: FR)
  Receive Date: 20150421
  Receipt Date: 20150421
  Transmission Date: 20150821
  Serious: Yes (Death)
  Sender: FDA-Public Use
  Company Number: FR-SA-2015SA049362

PATIENT
  Age: 84 Year
  Sex: Male

DRUGS (10)
  1. DEROXAT [Concomitant]
     Active Substance: PAROXETINE HYDROCHLORIDE
  2. LASILIX [Concomitant]
     Active Substance: FUROSEMIDE
  3. PARIET [Concomitant]
     Active Substance: RABEPRAZOLE SODIUM
  4. HEMIGOXINE NATIVELLE [Concomitant]
     Active Substance: DIGOXIN
  5. LEXOMIL [Concomitant]
     Active Substance: BROMAZEPAM
  6. IPRATROPIUM [Concomitant]
     Active Substance: IPRATROPIUM
  7. SINTROM [Suspect]
     Active Substance: ACENOCOUMAROL
     Indication: ATRIAL FIBRILLATION
     Route: 058
     Dates: end: 20150303
  8. TERBUTALINE [Concomitant]
     Active Substance: TERBUTALINE
  9. LOVENOX [Suspect]
     Active Substance: ENOXAPARIN SODIUM
     Indication: ATRIAL FIBRILLATION
     Route: 058
     Dates: end: 20150303
  10. SECTRAL [Concomitant]
     Active Substance: ACEBUTOLOL HYDROCHLORIDE

REACTIONS (4)
  - Alveolitis allergic [Fatal]
  - International normalised ratio increased [Fatal]
  - Malnutrition-inflammation-atherosclerosis syndrome [Fatal]
  - Gastrointestinal haemorrhage [Fatal]

NARRATIVE: CASE EVENT DATE: 20150302
